FAERS Safety Report 4587550-2 (Version None)
Quarter: 2005Q1

REPORT INFORMATION
  Report Type: 
  Country: None (occurrence: None)
  Receive Date: 20050215
  Receipt Date: 20040122
  Transmission Date: 20050727
  Serious: No
  Sender: FDA-Public Use
  Company Number: C04-T-007

PATIENT
  Age: 74 Year
  Sex: Female

DRUGS (1)
  1. PROPOXYPHENE NAPSYLATE AND ACETAMINOPHEN [Suspect]
     Indication: COMPRESSION FRACTURE

REACTIONS (3)
  - ANTICHOLINERGIC SYNDROME [None]
  - DRY MOUTH [None]
  - VISUAL DISTURBANCE [None]
